FAERS Safety Report 5162372-2 (Version None)
Quarter: 2006Q4

REPORT INFORMATION
  Report Type: 
  Country: None (occurrence: None)
  Receive Date: 20061127
  Receipt Date: 20061127
  Transmission Date: 20070319
  Serious: Yes (Hospitalization)
  Sender: FDA-Public Use
  Company Number: None

PATIENT
  Sex: Male
  Weight: 100.9 kg

DRUGS (4)
  1. CYCLOPHOSPHAMIDE [Suspect]
     Dosage: 2700 MG
     Dates: end: 20061108
  2. DAUNORUBICIN HCL [Suspect]
     Dosage: 540 MG
     Dates: end: 20061110
  3. ELSPAR [Suspect]
     Dosage: 27120 MG
     Dates: end: 20061116
  4. VINCRISTINE SULFATE [Suspect]
     Dosage: 4 MG
     Dates: end: 20061116

REACTIONS (11)
  - ABDOMINAL PAIN UPPER [None]
  - BLOOD CREATININE INCREASED [None]
  - BLOOD CULTURE POSITIVE [None]
  - BLOOD PRESSURE DECREASED [None]
  - CHILLS [None]
  - DIARRHOEA [None]
  - DYSURIA [None]
  - ESCHERICHIA INFECTION [None]
  - MALAISE [None]
  - POLLAKIURIA [None]
  - TUNNEL VISION [None]
